FAERS Safety Report 7128154-7 (Version None)
Quarter: 2010Q4

REPORT INFORMATION
  Report Type: 
  Country: None (occurrence: None)
  Receive Date: 20101112
  Receipt Date: 20101028
  Transmission Date: 20110411
  Serious: Yes (Hospitalization)
  Sender: FDA-Public Use
  Company Number: 2009AL000304

PATIENT
  Age: 75 Year
  Sex: Male
  Weight: 68.6 kg

DRUGS (2)
  1. PRALATREXATE (PRALATREXATE) [Suspect]
     Indication: DIFFUSE LARGE B-CELL LYMPHOMA
     Dosage: 18 MG;QOW;IV
     Route: 042
     Dates: start: 20091005, end: 20091019
  2. GEMCITABINE [Suspect]
     Indication: DIFFUSE LARGE B-CELL LYMPHOMA
     Dosage: 700 MG;QOW;IV
     Route: 042
     Dates: start: 20091006, end: 20091006

REACTIONS (4)
  - ANAEMIA [None]
  - HYPOTENSION [None]
  - MUSCULAR WEAKNESS [None]
  - SEPSIS SYNDROME [None]
